FAERS Safety Report 4373005-7 (Version None)
Quarter: 2004Q2

REPORT INFORMATION
  Report Type: 
  Country: None (occurrence: None)
  Receive Date: 20040608
  Receipt Date: 20030714
  Transmission Date: 20050107
  Serious: Yes (Death, Hospitalization, Other)
  Sender: FDA-Public Use
  Company Number: US-MERCK-0307USA01625

PATIENT
  Age: 57 Year
  Sex: Male

DRUGS (14)
  1. ELAVIL [Concomitant]
     Route: 048
  2. TRACLEER [Suspect]
     Indication: PULMONARY HYPERTENSION
     Route: 048
     Dates: start: 20030302, end: 20030423
  3. TRACLEER [Suspect]
     Route: 048
     Dates: start: 20030423
  4. CELEXA [Concomitant]
     Route: 065
  5. CARDIZEM [Suspect]
     Route: 065
  6. FLOLAN [Suspect]
     Route: 042
  7. ALLEGRA [Concomitant]
     Route: 065
  8. LASIX [Concomitant]
     Route: 065
  9. NEURONTIN [Suspect]
     Route: 065
  10. PREVACID [Concomitant]
     Route: 065
  11. OXYCONTIN [Concomitant]
     Route: 065
  12. VIOXX [Suspect]
     Route: 048
     Dates: end: 20030501
  13. ALDACTONE [Concomitant]
     Route: 065
  14. COUMADIN [Concomitant]
     Route: 065
     Dates: end: 20030501

REACTIONS (7)
  - HYPERHIDROSIS [None]
  - HYPONATRAEMIA [None]
  - OESOPHAGEAL DISORDER [None]
  - PNEUMONIA ASPIRATION [None]
  - RESPIRATORY ARREST [None]
  - SEPSIS [None]
  - THROMBOCYTOPENIA [None]
